FAERS Safety Report 12773316 (Version 1)
Quarter: 2016Q3

REPORT INFORMATION
  Report Type: Spontaneous
  Country: US (occurrence: US)
  Receive Date: 20160922
  Receipt Date: 20160922
  Transmission Date: 20161109
  Serious: No
  Sender: FDA-Public Use
  Company Number: US-BANPHARM-20164653

PATIENT
  Age: 47 Year
  Sex: Female
  Weight: 86.18 kg

DRUGS (2)
  1. NATURE MADE MULTI-VITAMIN [Concomitant]
     Dosage: QD,
  2. ZYRTEC [Suspect]
     Active Substance: CETIRIZINE HYDROCHLORIDE
     Indication: MULTIPLE ALLERGIES
     Dosage: 1 DF, QID,
     Route: 048

REACTIONS (2)
  - Drug effect incomplete [Unknown]
  - Intentional product misuse [Unknown]
